FAERS Safety Report 24879110 (Version 6)
Quarter: 2025Q3

REPORT INFORMATION
  Report Type: Spontaneous
  Country: US (occurrence: US)
  Receive Date: 20250123
  Receipt Date: 20250730
  Transmission Date: 20251020
  Serious: Yes (Other)
  Sender: PFIZER
  Company Number: US-PFIZER INC-202500015826

PATIENT
  Age: 46 Year
  Sex: Female
  Weight: 63.5 kg

DRUGS (2)
  1. DEPO-PROVERA [Suspect]
     Active Substance: MEDROXYPROGESTERONE ACETATE
     Indication: Contraception
     Route: 030
     Dates: start: 1998, end: 202405
  2. DEPO-PROVERA [Suspect]
     Active Substance: MEDROXYPROGESTERONE ACETATE

REACTIONS (13)
  - Uterine haemorrhage [Recovered/Resolved]
  - Thrombosis [Unknown]
  - Off label use [Unknown]
  - Product use issue [Unknown]
  - Skin discolouration [Unknown]
  - Memory impairment [Unknown]
  - Asthenia [Unknown]
  - Impaired quality of life [Unknown]
  - Alopecia [Unknown]
  - Malaise [Unknown]
  - Abdominal pain upper [Unknown]
  - Illness [Unknown]
  - Cardiac disorder [Unknown]
